FAERS Safety Report 22291558 (Version 1)
Quarter: 2023Q2

REPORT INFORMATION
  Report Type: Spontaneous
  Country: US (occurrence: US)
  Receive Date: 20230506
  Receipt Date: 20230506
  Transmission Date: 20230722
  Serious: Yes (Other)
  Sender: FDA-Public Use
  Company Number: US-FreseniusKabi-FK202305885

PATIENT
  Age: 63 Year
  Sex: Female

DRUGS (6)
  1. CARBOPLATIN [Suspect]
     Active Substance: CARBOPLATIN
     Indication: Ovarian cancer stage III
     Dosage: CARBOPLATIN/PACLITAXEL
  2. GEMCITABINE [Suspect]
     Active Substance: GEMCITABINE
     Indication: Ovarian cancer stage III
     Dosage: DISEASE PROGRESSION PROMPTED TREATMENT CHANGE TO BEVACIZUMAB/GEMCITABINE
  3. BEVACIZUMAB [Suspect]
     Active Substance: BEVACIZUMAB
     Indication: Ovarian cancer stage III
     Dosage: DISEASE PROGRESSION PROMPTED TREATMENT CHANGE TO BEVACIZUMAB/GEMCITABINE
  4. BEVACIZUMAB [Suspect]
     Active Substance: BEVACIZUMAB
     Dosage: PACLITAXEL/BEVACIZUMAB
  5. PACLITAXEL [Concomitant]
     Active Substance: PACLITAXEL
     Indication: Ovarian cancer stage III
     Dosage: PACLITAXEL/BEVACIZUMAB
  6. PACLITAXEL [Concomitant]
     Active Substance: PACLITAXEL
     Dosage: CARBOPLATIN/PACLITAXEL

REACTIONS (1)
  - Thrombotic microangiopathy [Recovering/Resolving]
